FAERS Safety Report 7531275-8 (Version None)
Quarter: 2011Q2

REPORT INFORMATION
  Report Type: 
  Country: None (occurrence: None)
  Receive Date: 20110608
  Receipt Date: 20110606
  Transmission Date: 20111010
  Serious: Yes (Hospitalization, Other)
  Sender: FDA-Public Use
  Company Number: DE-ABBOTT-10P-062-0693507-00

PATIENT
  Sex: Female
  Weight: 57 kg

DRUGS (7)
  1. PANTOPRAZOLE [Concomitant]
     Indication: PRODUCT USED FOR UNKNOWN INDICATION
     Route: 048
     Dates: start: 20090301
  2. KALINOR [Concomitant]
     Indication: PRODUCT USED FOR UNKNOWN INDICATION
  3. HUMIRA [Suspect]
     Indication: CROHN'S DISEASE
     Dates: start: 20090623, end: 20100810
  4. PREDNISOLONE [Concomitant]
     Indication: PRODUCT USED FOR UNKNOWN INDICATION
     Route: 048
     Dates: start: 20080101
  5. CALCILAC [Concomitant]
     Indication: OSTEOPOROSIS
  6. ESPUMISAN [Concomitant]
     Indication: PRODUCT USED FOR UNKNOWN INDICATION
  7. METOCLOPRAMIDE [Concomitant]
     Indication: PRODUCT USED FOR UNKNOWN INDICATION

REACTIONS (7)
  - LUPUS-LIKE SYNDROME [None]
  - CROHN'S DISEASE [None]
  - ANAL FISTULA [None]
  - PELVIC PAIN [None]
  - PELVIC ABSCESS [None]
  - ANAL SPHINCTER ATONY [None]
  - RECTAL HAEMORRHAGE [None]
